FAERS Safety Report 21140829 (Version 1)
Quarter: 2022Q3

REPORT INFORMATION
  Report Type: Spontaneous
  Country: FR (occurrence: None)
  Receive Date: 20220728
  Receipt Date: 20220728
  Transmission Date: 20221026
  Serious: Yes (Life-Threatening)
  Sender: FDA-Public Use
  Company Number: FR-Orion Corporation ORION PHARMA-TREX2022-0138

PATIENT
  Sex: Female

DRUGS (5)
  1. METHOTREXATE [Interacting]
     Active Substance: METHOTREXATE
     Indication: Rheumatoid arthritis
     Route: 048
  2. ACYCLOVIR [Interacting]
     Active Substance: ACYCLOVIR
     Indication: Varicella zoster pneumonia
     Route: 065
     Dates: start: 20211224, end: 20211227
  3. CANDESARTAN CILEXETIL [Interacting]
     Active Substance: CANDESARTAN CILEXETIL
     Indication: Hypertension
     Route: 048
  4. CANDESARTAN CILEXETIL [Interacting]
     Active Substance: CANDESARTAN CILEXETIL
     Route: 065
  5. HYDROCHLOROTHIAZIDE\NEBIVOLOL HYDROCHLORIDE [Interacting]
     Active Substance: HYDROCHLOROTHIAZIDE\NEBIVOLOL HYDROCHLORIDE
     Indication: Hypertension
     Dosage: STRENGTH:  5 MG/12.5 MG?DOSE: 12.5 MILLIGRAM SUSPECTED SUBSTANCE HYDROCHLOROTHIAZIDE IN TEMERITDUO S
     Route: 048

REACTIONS (2)
  - Drug interaction [Unknown]
  - Acute kidney injury [Recovered/Resolved]

NARRATIVE: CASE EVENT DATE: 20211227
